FAERS Safety Report 14256454 (Version 4)
Quarter: 2019Q1

REPORT INFORMATION
  Report Type: Report from Study
  Country: CA (occurrence: CA)
  Receive Date: 20171206
  Receipt Date: 20190215
  Transmission Date: 20190417
  Serious: Yes (Other)
  Sender: FDA-Public Use
  Company Number: CA-PFIZER INC-2017518472

PATIENT
  Age: 16 Month
  Sex: Female

DRUGS (3)
  1. IBUPROFEN. [Suspect]
     Active Substance: IBUPROFEN
     Indication: CROUP INFECTIOUS
     Dosage: UNK UNK, 4X/DAY (EVERY 6 H)
  2. CHLORAL HYDRATE [Suspect]
     Active Substance: CHLORAL HYDRATE
     Indication: SEDATION
     Dosage: UNK
  3. DEXAMETHASONE. [Suspect]
     Active Substance: DEXAMETHASONE
     Indication: CROUP INFECTIOUS
     Dosage: UNK, 4X/DAY (EVERY 6 H)

REACTIONS (1)
  - Duodenal ulcer perforation [Unknown]
